FAERS Safety Report 4693662-5 (Version None)
Quarter: 2005Q2

REPORT INFORMATION
  Report Type: 
  Country: None (occurrence: None)
  Receive Date: 20050617
  Receipt Date: 20050606
  Transmission Date: 20051028
  Serious: Yes (Other)
  Sender: FDA-Public Use
  Company Number: 2005AC00864

PATIENT
  Age: 71 Year
  Sex: Female

DRUGS (1)
  1. MEPIVACAINE HCL [Suspect]
     Indication: POST HERPETIC NEURALGIA
     Route: 053

REACTIONS (3)
  - DYSPHONIA [None]
  - HEART RATE INCREASED [None]
  - HYPERTENSION [None]
